FAERS Safety Report 9020935 (Version 4)
Quarter: 2013Q4

REPORT INFORMATION
  Report Type: Report from Study
  Country: US (occurrence: US)
  Receive Date: 20130119
  Receipt Date: 20131126
  Transmission Date: 20140711
  Serious: Yes (Other)
  Sender: FDA-Public Use
  Company Number: US-US-EMD SERONO, INC.-7187340

PATIENT
  Age: 53 Year
  Sex: Female

DRUGS (1)
  1. REBIF [Suspect]
     Indication: MULTIPLE SCLEROSIS
     Route: 058
     Dates: start: 20120417

REACTIONS (4)
  - Lymphadenopathy [Recovered/Resolved]
  - Varicose vein [Not Recovered/Not Resolved]
  - Procedural pain [Recovering/Resolving]
  - Post procedural swelling [Not Recovered/Not Resolved]
